FAERS Safety Report 21370033 (Version 1)
Quarter: 2022Q3

REPORT INFORMATION
  Report Type: Report from Study
  Country: CA (occurrence: CA)
  Receive Date: 20220923
  Receipt Date: 20220923
  Transmission Date: 20221027
  Serious: Yes (Hospitalization)
  Sender: FDA-Public Use
  Company Number: CA-NOVARTISPH-PHHY2015CA092335

PATIENT
  Sex: Female

DRUGS (7)
  1. SANDOSTATIN LAR DEPOT [Suspect]
     Active Substance: OCTREOTIDE ACETATE
     Indication: Neuroendocrine tumour
     Dosage: 60 MG, Q4W
     Route: 030
     Dates: start: 20150702
  2. SANDOSTATIN LAR DEPOT [Suspect]
     Active Substance: OCTREOTIDE ACETATE
     Dosage: 60 MG, Q3W
     Route: 030
     Dates: start: 20160111, end: 20220225
  3. SANDOSTATIN LAR DEPOT [Suspect]
     Active Substance: OCTREOTIDE ACETATE
     Dosage: 60 MG, Q3W
     Route: 030
  4. BUSPIRONE [Concomitant]
     Active Substance: BUSPIRONE HYDROCHLORIDE
     Indication: Product used for unknown indication
     Dosage: UNK (STRENGTH: 10)
     Route: 048
  5. ESCITALOPRAM [Concomitant]
     Active Substance: ESCITALOPRAM OXALATE
     Indication: Product used for unknown indication
     Dosage: UNK
     Route: 065
  6. PERINDOPRIL [Concomitant]
     Active Substance: PERINDOPRIL
     Indication: Product used for unknown indication
     Dosage: UNK
     Route: 048
  7. INDAPAMIDE [Concomitant]
     Active Substance: INDAPAMIDE
     Indication: Product used for unknown indication
     Dosage: UNK
     Route: 048

REACTIONS (23)
  - Malaise [Unknown]
  - Blood pressure increased [Unknown]
  - Hot flush [Unknown]
  - Peripheral swelling [Unknown]
  - Nasopharyngitis [Unknown]
  - Oedema peripheral [Unknown]
  - Contusion [Unknown]
  - Limb discomfort [Unknown]
  - Fatigue [Unknown]
  - Blood glucose fluctuation [Unknown]
  - Heart rate increased [Unknown]
  - Diarrhoea [Unknown]
  - Nausea [Recovered/Resolved]
  - Dizziness [Recovered/Resolved]
  - Injection site swelling [Recovered/Resolved]
  - Injection site erythema [Recovered/Resolved]
  - Injection site mass [Recovered/Resolved]
  - Injection site pain [Recovered/Resolved]
  - Inappropriate schedule of product administration [Unknown]
  - Incorrect dose administered by device [Unknown]
  - Needle issue [Unknown]
  - Product substitution issue [Unknown]
  - Drug ineffective [Unknown]

NARRATIVE: CASE EVENT DATE: 20150101
